FAERS Safety Report 6738797-8 (Version None)
Quarter: 2010Q2

REPORT INFORMATION
  Report Type: 
  Country: None (occurrence: None)
  Receive Date: 20100524
  Receipt Date: 20100511
  Transmission Date: 20101027
  Serious: Yes (Death)
  Sender: FDA-Public Use
  Company Number: DK-WATSON-2010-06645

PATIENT
  Age: 24 Year
  Sex: Female

DRUGS (1)
  1. METHYLPREDNISOLONE ACETATE [Suspect]
     Indication: ENDOCRINE OPHTHALMOPATHY
     Dosage: 1G DILUTED IN 500ML NACL 0.9% INFUSED OVER SIX HOURS
     Route: 042
     Dates: start: 20021201

REACTIONS (2)
  - CEREBRAL INFARCTION [None]
  - CEREBRAL THROMBOSIS [None]
